FAERS Safety Report 4369331-8 (Version None)
Quarter: 2004Q2

REPORT INFORMATION
  Report Type: 
  Country: None (occurrence: None)
  Receive Date: 20040528
  Receipt Date: 20040521
  Transmission Date: 20050107
  Serious: Yes (Death)
  Sender: FDA-Public Use
  Company Number: US-JNJFOC-20040402613

PATIENT
  Age: 75 Year
  Sex: Male

DRUGS (2)
  1. DURAGESIC [Suspect]
     Indication: CANCER PAIN
     Dosage: 25 UG/HR, TRANSDERMAL
     Route: 062
     Dates: start: 20040101, end: 20040309
  2. MORPHINE SUL INJ [Concomitant]

REACTIONS (1)
  - PANCREATIC CARCINOMA [None]
